FAERS Safety Report 7746390-3 (Version None)
Quarter: 2011Q3

REPORT INFORMATION
  Report Type: 
  Country: None (occurrence: None)
  Receive Date: 20110913
  Receipt Date: 20110913
  Transmission Date: 20111222
  Serious: No
  Sender: FDA-Public Use
  Company Number: None

PATIENT
  Age: 24 Year
  Sex: Female
  Weight: 68.038 kg

DRUGS (1)
  1. CREST PROHEALTH COMPLETE MOUTWASH (OTC) [Suspect]
     Dosage: 2 TEASPOONS
     Route: 048
     Dates: start: 20110910, end: 20110911

REACTIONS (2)
  - GLOSSODYNIA [None]
  - AGEUSIA [None]
